FAERS Safety Report 4648846-9 (Version None)
Quarter: 2005Q2

REPORT INFORMATION
  Report Type: 
  Country: None (occurrence: None)
  Receive Date: 20050427
  Receipt Date: 20050415
  Transmission Date: 20051028
  Serious: Yes (Hospitalization)
  Sender: FDA-Public Use
  Company Number: 2005CG00770

PATIENT
  Age: 57 Year
  Sex: Male

DRUGS (6)
  1. IRESSA [Suspect]
     Indication: LUNG ADENOCARCINOMA
     Dosage: 250 MG QD PO
     Route: 048
     Dates: start: 20041028
  2. PREDNISONE [Concomitant]
  3. COAPROVEL [Concomitant]
  4. PLAVIX [Concomitant]
  5. FUROSEMIDE [Concomitant]
  6. ELISOR [Concomitant]

REACTIONS (2)
  - CHEST PAIN [None]
  - OESOPHAGITIS [None]
